FAERS Safety Report 13668830 (Version 3)
Quarter: 2017Q3

REPORT INFORMATION
  Report Type: Report from Study
  Country: DE (occurrence: DE)
  Receive Date: 20170620
  Receipt Date: 20170818
  Transmission Date: 20171127
  Serious: Yes (Other)
  Sender: FDA-Public Use
  Company Number: DE-JNJFOC-20170615455

PATIENT
  Age: 3 Decade
  Sex: Male
  Weight: 88 kg

DRUGS (1)
  1. SIMPONI [Suspect]
     Active Substance: GOLIMUMAB
     Indication: COLITIS ULCERATIVE
     Route: 058
     Dates: start: 20151104

REACTIONS (4)
  - Drug ineffective [Unknown]
  - Colitis ulcerative [Recovering/Resolving]
  - Macrocytosis [Unknown]
  - Cystitis [Unknown]
